FAERS Safety Report 18225581 (Version 1)
Quarter: 2020Q3

REPORT INFORMATION
  Report Type: Spontaneous
  Country: CA (occurrence: CA)
  Receive Date: 20200903
  Receipt Date: 20200903
  Transmission Date: 20201103
  Serious: Yes (Other)
  Sender: FDA-Public Use
  Company Number: CA-TEVA-2020-CA-1821359

PATIENT
  Age: 32 Year
  Sex: Female

DRUGS (4)
  1. BUPROPION SR [Suspect]
     Active Substance: BUPROPION HYDROCHLORIDE
     Indication: BIPOLAR DISORDER
  2. METHYLPHENIDATE SR [Concomitant]
     Active Substance: METHYLPHENIDATE HYDROCHLORIDE
  3. BUPROPION SR [Suspect]
     Active Substance: BUPROPION HYDROCHLORIDE
     Indication: DEPRESSION
     Dosage: 150 MILLIGRAM DAILY;
     Route: 048
  4. BUPROPION SR [Suspect]
     Active Substance: BUPROPION HYDROCHLORIDE
     Indication: ANXIETY

REACTIONS (6)
  - Abnormal behaviour [Unknown]
  - Suicidal ideation [Unknown]
  - Anxiety [Unknown]
  - Irritability [Unknown]
  - Panic attack [Unknown]
  - Mood altered [Unknown]
